FAERS Safety Report 18958964 (Version 1)
Quarter: 2021Q1

REPORT INFORMATION
  Report Type: Spontaneous
  Country: US (occurrence: US)
  Receive Date: 20210302
  Receipt Date: 20210302
  Transmission Date: 20210420
  Serious: No
  Sender: FDA-Public Use
  Company Number: US-ELI_LILLY_AND_COMPANY-US202102007916

PATIENT
  Age: 74 Year
  Sex: Male

DRUGS (1)
  1. BAMLANIVIMAB. [Suspect]
     Active Substance: BAMLANIVIMAB
     Indication: COVID-19
     Dosage: UNK, SINGLE
     Route: 042
     Dates: start: 20210125, end: 20210125

REACTIONS (10)
  - Asthenia [Not Recovered/Not Resolved]
  - Jaw disorder [Recovered/Resolved]
  - Abnormal dreams [Not Recovered/Not Resolved]
  - Pain [Recovered/Resolved]
  - Fatigue [Not Recovered/Not Resolved]
  - Somnolence [Unknown]
  - Pyrexia [Recovered/Resolved]
  - Cough [Unknown]
  - Tremor [Recovered/Resolved]
  - Respiration abnormal [Unknown]

NARRATIVE: CASE EVENT DATE: 20210125
